FAERS Safety Report 12997530 (Version 4)
Quarter: 2017Q2

REPORT INFORMATION
  Report Type: Report from Study
  Country: DE (occurrence: DE)
  Receive Date: 20161205
  Receipt Date: 20170526
  Transmission Date: 20170830
  Serious: Yes (Hospitalization)
  Sender: FDA-Public Use
  Company Number: PHHY2016DE165783

PATIENT
  Sex: Female
  Weight: 81 kg

DRUGS (16)
  1. COSENTYX [Suspect]
     Active Substance: SECUKINUMAB
     Dosage: 150 MG, MG PER APPLICATION
     Route: 065
     Dates: start: 20160719
  2. TILIDIN COMP [Concomitant]
     Active Substance: NALOXONE HYDROCHLORIDE\TILIDINE HYDROCHLORIDE
     Indication: PAIN
  3. COSENTYX [Suspect]
     Active Substance: SECUKINUMAB
     Dosage: 150 MG, MG PER APPLICATION
     Route: 065
     Dates: start: 20160810
  4. COSENTYX [Suspect]
     Active Substance: SECUKINUMAB
     Dosage: 150 MG, MG PER APPLICATION
     Route: 065
     Dates: start: 20160906
  5. COSENTYX [Suspect]
     Active Substance: SECUKINUMAB
     Dosage: 150 MG, MG PER APPLICATION
     Route: 065
     Dates: start: 20161106, end: 20161106
  6. NAPROXEN. [Concomitant]
     Active Substance: NAPROXEN
     Indication: ANKYLOSING SPONDYLITIS
     Dosage: 500 MG, PRN
     Route: 048
     Dates: start: 20161222
  7. COSENTYX [Suspect]
     Active Substance: SECUKINUMAB
     Dosage: 150 MG, MG PER APPLICATION
     Route: 065
     Dates: start: 20160712
  8. COSENTYX [Suspect]
     Active Substance: SECUKINUMAB
     Dosage: 150 MG, MG PER APPLICATION
     Route: 065
     Dates: start: 20160803
  9. IBUPROFEN. [Concomitant]
     Active Substance: IBUPROFEN
     Indication: ANKYLOSING SPONDYLITIS
     Dosage: 600 MG, AS NEEDED
     Route: 048
  10. ARCOXIA [Concomitant]
     Active Substance: ETORICOXIB
     Indication: ANKYLOSING SPONDYLITIS
     Dosage: 90 MG, QD
     Route: 048
     Dates: start: 201611
  11. COSENTYX [Suspect]
     Active Substance: SECUKINUMAB
     Indication: ANKYLOSING SPONDYLITIS
     Dosage: 150 MG, MG PER APPLICATION
     Route: 065
     Dates: start: 20160621
  12. COSENTYX [Suspect]
     Active Substance: SECUKINUMAB
     Dosage: 150 MG, MG PER APPLICATION
     Route: 065
     Dates: start: 20160726
  13. COSENTYX [Suspect]
     Active Substance: SECUKINUMAB
     Dosage: 150 MG, MG PER APPLICATION
     Route: 065
     Dates: start: 20160628
  14. COSENTYX [Suspect]
     Active Substance: SECUKINUMAB
     Dosage: 150 MG, MG PER APPLICATION
     Route: 065
     Dates: start: 20160705
  15. TILIDIN COMP [Concomitant]
     Active Substance: NALOXONE HYDROCHLORIDE\TILIDINE HYDROCHLORIDE
     Indication: ANKYLOSING SPONDYLITIS
     Dosage: 1 DF (50 MG+4MG), PRN
     Route: 048
  16. PANTOPRAZOLE [Concomitant]
     Active Substance: PANTOPRAZOLE
     Indication: PROPHYLAXIS AGAINST GASTROINTESTINAL ULCER
     Dosage: 40 MG, QD
     Route: 048
     Dates: start: 201611

REACTIONS (2)
  - Inappropriate schedule of drug administration [Unknown]
  - Pneumonia [Unknown]

NARRATIVE: CASE EVENT DATE: 201611
